FAERS Safety Report 23480184 (Version 1)
Quarter: 2024Q1

REPORT INFORMATION
  Report Type: Spontaneous
  Country: US (occurrence: US)
  Receive Date: 20240205
  Receipt Date: 20240205
  Transmission Date: 20240410
  Serious: Yes (Other)
  Sender: FDA-Public Use
  Company Number: US-BEH-2024168099

PATIENT
  Sex: Male

DRUGS (1)
  1. PRIVIGEN [Suspect]
     Active Substance: HUMAN IMMUNOGLOBULIN G
     Indication: Systemic lupus erythematosus
     Dosage: 2 GRAM/KG OVER 5 DAYS
     Route: 065

REACTIONS (3)
  - Seizure [Unknown]
  - No adverse event [Unknown]
  - Off label use [Unknown]
